FAERS Safety Report 5848439-1 (Version None)
Quarter: 2008Q3

REPORT INFORMATION
  Report Type: 
  Country: None (occurrence: None)
  Receive Date: 20080814
  Receipt Date: 20070111
  Transmission Date: 20090109
  Serious: Yes (Other)
  Sender: FDA-Public Use
  Company Number: 2008S1011896

PATIENT
  Age: 53 Year
  Sex: Female

DRUGS (2)
  1. CLARITHROMYCIN [Suspect]
     Indication: LOWER RESPIRATORY TRACT INFECTION
     Dosage: 500 MG; TWICE A DAY ORAL, 500 MG; ORAL; TWICE A DAY
     Route: 048
     Dates: start: 20061001, end: 20061112
  2. CLARITHROMYCIN [Suspect]
     Indication: LOWER RESPIRATORY TRACT INFECTION
     Dosage: 500 MG; TWICE A DAY ORAL, 500 MG; ORAL; TWICE A DAY
     Route: 048
     Dates: start: 20061001, end: 20061112

REACTIONS (2)
  - AGEUSIA [None]
  - ANOSMIA [None]
